FAERS Safety Report 4490721-7 (Version None)
Quarter: 2004Q4

REPORT INFORMATION
  Report Type: 
  Country: None (occurrence: None)
  Receive Date: 20041027
  Receipt Date: 20041012
  Transmission Date: 20050328
  Serious: Yes (Death, Life-Threatening)
  Sender: FDA-Public Use
  Company Number: 239825

PATIENT
  Age: 36 Month
  Sex: Female
  Weight: 4.8 kg

DRUGS (7)
  1. NOVOSEVEN [Suspect]
     Indication: PULMONARY HAEMORRHAGE
     Dosage: 30 UG/KG, INTRAVENOUS
     Route: 042
     Dates: start: 20041001, end: 20041001
  2. NOVOSEVEN [Suspect]
     Indication: PULMONARY HAEMORRHAGE
     Dosage: 30 UG/KG, INTRAVENOUS
     Route: 042
     Dates: start: 20041001, end: 20041001
  3. CEFTRIAXONE [Concomitant]
  4. VANCOMYCIN [Concomitant]
  5. AMIKACIN [Concomitant]
  6. DIGOXIN [Concomitant]
  7. SPIRONOLACTONE [Concomitant]

REACTIONS (4)
  - ACTIVATED PARTIAL THROMBOPLASTIN TIME PROLONGED [None]
  - DISSEMINATED INTRAVASCULAR COAGULATION [None]
  - HYPOTHERMIA [None]
  - PULMONARY HAEMORRHAGE [None]
